FAERS Safety Report 9859305 (Version 2)
Quarter: 2014Q1

REPORT INFORMATION
  Report Type: Spontaneous
  Country: US (occurrence: US)
  Receive Date: 20140131
  Receipt Date: 20140306
  Transmission Date: 20141002
  Serious: No
  Sender: FDA-Public Use
  Company Number: US-PFIZER INC-2014029604

PATIENT
  Age: 34 Year
  Sex: Female

DRUGS (4)
  1. LYRICA [Suspect]
     Dosage: 150 MG, 4X/DAY (1 TAB QAM, 1 TAB QPM AND 2 TABS QHS)
     Route: 048
  2. ZYRTEC-D [Concomitant]
     Dosage: UNK
  3. ROBAXIN [Concomitant]
     Dosage: UNK
  4. KLONOPIN [Concomitant]
     Dosage: UNK

REACTIONS (2)
  - Pain [Unknown]
  - Fatigue [Unknown]
